FAERS Safety Report 8236886-2 (Version None)
Quarter: 2012Q1

REPORT INFORMATION
  Report Type: 
  Country: None (occurrence: None)
  Receive Date: 20120327
  Receipt Date: 20110406
  Transmission Date: 20120608
  Serious: No
  Sender: FDA-Public Use
  Company Number: US-GLAXOSMITHKLINE-A0921648A

PATIENT
  Age: 53 Year
  Sex: Female

DRUGS (3)
  1. METFORMIN HCL [Concomitant]
  2. LUXIQ [Suspect]
     Indication: ALOPECIA
     Route: 061
     Dates: start: 20110315
  3. VITAMIN D [Concomitant]

REACTIONS (3)
  - BURNING SENSATION [None]
  - LOCAL SWELLING [None]
  - ERYTHEMA [None]
